FAERS Safety Report 4500823-4 (Version None)
Quarter: 2004Q4

REPORT INFORMATION
  Report Type: 
  Country: None (occurrence: None)
  Receive Date: 20041115
  Receipt Date: 20041026
  Transmission Date: 20050328
  Serious: Yes (Life-Threatening)
  Sender: FDA-Public Use
  Company Number: JP-MERCK-0410USA04202

PATIENT
  Age: 84 Year
  Sex: Female
  Weight: 55 kg

DRUGS (11)
  1. COZAAR [Suspect]
     Indication: CARDIOMYOPATHY
     Route: 048
     Dates: start: 20041019, end: 20041019
  2. COZAAR [Suspect]
     Indication: HYPERTENSION
     Route: 048
     Dates: start: 20041019, end: 20041019
  3. LASIX [Concomitant]
     Route: 048
     Dates: start: 20040909, end: 20041107
  4. NITRODERM [Concomitant]
     Route: 061
     Dates: start: 20040913
  5. BAYASPIRIN [Concomitant]
     Route: 048
     Dates: start: 20040913
  6. GASTER [Concomitant]
     Route: 048
     Dates: start: 20040913
  7. DIGOXIN [Concomitant]
     Route: 048
     Dates: start: 20040913
  8. DEPAS [Concomitant]
     Route: 048
     Dates: start: 20040913
  9. HOKUNALIN [Concomitant]
     Route: 061
     Dates: start: 20040913
  10. MEROPENEM [Concomitant]
     Route: 042
     Dates: start: 20041003, end: 20041013
  11. CLINDAMYCIN PHOSPHATE [Concomitant]
     Route: 042
     Dates: start: 20041003, end: 20041013

REACTIONS (2)
  - BLOOD PRESSURE DECREASED [None]
  - SHOCK [None]
